FAERS Safety Report 13584317 (Version 1)
Quarter: 2017Q2

REPORT INFORMATION
  Report Type: Spontaneous
  Country: US (occurrence: US)
  Receive Date: 20170525
  Receipt Date: 20170525
  Transmission Date: 20170830
  Serious: No
  Sender: FDA-Public Use
  Company Number: None

PATIENT
  Age: 17 Year
  Sex: Male
  Weight: 51.75 kg

DRUGS (1)
  1. TRAMADOL 50MG TABLETS TRAMADOL [Suspect]
     Active Substance: TRAMADOL
     Indication: PAIN
     Dosage: ?          QUANTITY:1 TABLET(S);?
     Route: 048
     Dates: start: 20170525

REACTIONS (3)
  - Headache [None]
  - Product quality issue [None]
  - Drug effect incomplete [None]

NARRATIVE: CASE EVENT DATE: 20170525
